FAERS Safety Report 16050096 (Version 1)
Quarter: 2019Q1

REPORT INFORMATION
  Report Type: Spontaneous
  Country: FR (occurrence: FR)
  Receive Date: 20190308
  Receipt Date: 20190308
  Transmission Date: 20190418
  Serious: Yes (Hospitalization, Other)
  Sender: FDA-Public Use
  Company Number: FR-ACCORD-111094

PATIENT
  Age: 71 Year
  Sex: Male
  Weight: 68 kg

DRUGS (10)
  1. SPECIAFOLDINE [Concomitant]
     Active Substance: FOLIC ACID
  2. BICALUTAMIDE. [Suspect]
     Active Substance: BICALUTAMIDE
     Indication: PROSTATE CANCER
     Route: 048
     Dates: start: 201703, end: 20180827
  3. OXYNORMORO [Concomitant]
     Active Substance: OXYCODONE HYDROCHLORIDE
  4. DECAPEPTYL [Suspect]
     Active Substance: TRIPTORELIN
     Indication: PROSTATE CANCER
     Route: 058
     Dates: start: 201703, end: 20180827
  5. LAROXYL [Concomitant]
     Active Substance: AMITRIPTYLINE HYDROCHLORIDE
  6. BACTRIM [Concomitant]
     Active Substance: SULFAMETHOXAZOLE\TRIMETHOPRIM
  7. VALIUM [Concomitant]
     Active Substance: DIAZEPAM
  8. TAMSULOSIN/TAMSULOSIN HYDROCHLORIDE [Concomitant]
  9. ADRIGYL [Concomitant]
     Active Substance: CHOLECALCIFEROL
  10. DOLIPRANE [Concomitant]
     Active Substance: ACETAMINOPHEN

REACTIONS (4)
  - Neuralgia [Not Recovered/Not Resolved]
  - Anaemia [Not Recovered/Not Resolved]
  - Muscular weakness [Not Recovered/Not Resolved]
  - Oedema [Not Recovered/Not Resolved]

NARRATIVE: CASE EVENT DATE: 201801
